FAERS Safety Report 5708929-9 (Version None)
Quarter: 2008Q2

REPORT INFORMATION
  Report Type: 
  Country: None (occurrence: None)
  Receive Date: 20080416
  Receipt Date: 20080407
  Transmission Date: 20081010
  Serious: Yes (Other)
  Sender: FDA-Public Use
  Company Number: 2008005965

PATIENT
  Age: 44 Year
  Sex: Female
  Weight: 65.7716 kg

DRUGS (1)
  1. BENGAY ULTRA STRENGTH PATCH (MENTHOL) [Suspect]
     Indication: MUSCULOSKELETAL DISCOMFORT
     Dosage: 1 PATCH ONCE, TOPICAL
     Route: 061
     Dates: start: 20080228, end: 20080228

REACTIONS (2)
  - SCAR [None]
  - SKIN LACERATION [None]
